FAERS Safety Report 9216975 (Version 1)
Quarter: 2013Q2

REPORT INFORMATION
  Report Type: Spontaneous
  Country: FR (occurrence: None)
  Receive Date: 20130404
  Receipt Date: 20130404
  Transmission Date: 20140414
  Serious: Yes (Death, Life-Threatening, Hospitalization)
  Sender: FDA-Public Use
  Company Number: 1654983

PATIENT
  Age: 55 Year
  Sex: Female

DRUGS (2)
  1. CARBOPLATIN [Suspect]
     Indication: RICHTER^S SYNDROME
     Route: 042
     Dates: start: 20130223, end: 20130225
  2. IFOSFAMIDE [Suspect]
     Indication: CHEMOTHERAPY
     Route: 042
     Dates: start: 20130223, end: 20130226

REACTIONS (16)
  - Coma [None]
  - Renal failure acute [None]
  - Renal tubular disorder [None]
  - Infection [None]
  - Hypotension [None]
  - Sinusitis [None]
  - Toxic encephalopathy [None]
  - Polyuria [None]
  - Renal tubular acidosis [None]
  - Aplasia [None]
  - Haematemesis [None]
  - Mouth haemorrhage [None]
  - Candida test positive [None]
  - Oesophageal candidiasis [None]
  - Implant site infection [None]
  - Haemorrhage intracranial [None]
